FAERS Safety Report 18300553 (Version 1)
Quarter: 2020Q3

REPORT INFORMATION
  Report Type: Spontaneous
  Country: US (occurrence: US)
  Receive Date: 20200923
  Receipt Date: 20200923
  Transmission Date: 20201103
  Serious: Yes (Hospitalization)
  Sender: FDA-Public Use
  Company Number: None

PATIENT
  Age: 41 Year
  Sex: Female
  Weight: 68 kg

DRUGS (1)
  1. GADAVIST [Suspect]
     Active Substance: GADOBUTROL
     Indication: BREAST CANCER
     Dosage: ?          OTHER FREQUENCY:ONCE FOR CONTRAST;?
     Route: 042
     Dates: start: 20200922

REACTIONS (5)
  - Blood pressure decreased [None]
  - Dyspnoea [None]
  - Dizziness [None]
  - Disorientation [None]
  - Oxygen saturation decreased [None]

NARRATIVE: CASE EVENT DATE: 20200922
